FAERS Safety Report 16556744 (Version 1)
Quarter: 2019Q3

REPORT INFORMATION
  Report Type: Spontaneous
  Country: CA (occurrence: CA)
  Receive Date: 20190711
  Receipt Date: 20190711
  Transmission Date: 20191004
  Serious: Yes (Hospitalization, Other)
  Sender: FDA-Public Use
  Company Number: CA-AUROBINDO-AUR-APL-2019-038486

PATIENT

DRUGS (1)
  1. TADALAFIL. [Suspect]
     Active Substance: TADALAFIL
     Indication: PULMONARY ARTERIAL HYPERTENSION
     Dosage: 40 MILLIGRAM, ONCE A DAY
     Route: 065

REACTIONS (6)
  - Limb injury [Unknown]
  - Musculoskeletal discomfort [Unknown]
  - Musculoskeletal pain [Unknown]
  - Dyspnoea [Unknown]
  - Weight decreased [Unknown]
  - Oedema peripheral [Unknown]
